FAERS Safety Report 5153258-8 (Version None)
Quarter: 2006Q4

REPORT INFORMATION
  Report Type: 
  Country: None (occurrence: None)
  Receive Date: 20061117
  Receipt Date: 20061102
  Transmission Date: 20070319
  Serious: Yes (Hospitalization)
  Sender: FDA-Public Use
  Company Number: US-ROCHE-469984

PATIENT
  Age: 56 Year
  Sex: Female
  Weight: 73 kg

DRUGS (16)
  1. BONIVA [Suspect]
     Indication: OSTEOPOROSIS
     Route: 048
     Dates: start: 20051215, end: 20060515
  2. DEMADEX [Suspect]
     Route: 048
  3. DEMADEX [Suspect]
     Route: 048
     Dates: start: 20060131
  4. GENGRAF [Concomitant]
     Indication: IMMUNOSUPPRESSION
  5. PREDNISONE TAB [Concomitant]
     Indication: IMMUNOSUPPRESSION
  6. ARANESP [Concomitant]
  7. FERROUS SULFATE TAB [Concomitant]
  8. NEXIUM [Concomitant]
  9. LIPITOR [Concomitant]
  10. COZAAR [Concomitant]
     Indication: HYPERTENSION
  11. VERAPAMIL [Concomitant]
     Indication: ATRIAL FIBRILLATION
  12. CALCIUM CARBONATE [Concomitant]
     Indication: OSTEOPOROSIS
  13. VITAMIN D [Concomitant]
     Indication: OSTEOPOROSIS
  14. SORIATANE [Concomitant]
     Indication: PSORIASIS
  15. OXYCODONE HCL [Concomitant]
     Indication: BACK PAIN
  16. ACID FOLIC [Concomitant]

REACTIONS (3)
  - CHRONIC ALLOGRAFT NEPHROPATHY [None]
  - OEDEMA [None]
  - TRANSPLANT FAILURE [None]
